FAERS Safety Report 18560063 (Version 2)
Quarter: 2020Q4

REPORT INFORMATION
  Report Type: Report from Study
  Country: CA (occurrence: CA)
  Receive Date: 20201130
  Receipt Date: 20201211
  Transmission Date: 20210114
  Serious: Yes (Hospitalization)
  Sender: FDA-Public Use
  Company Number: CA-JNJFOC-20201103935

PATIENT
  Age: 77 Year
  Sex: Male
  Weight: 58.9 kg

DRUGS (15)
  1. ADVIL [IBUPROFEN] [Concomitant]
     Active Substance: IBUPROFEN
     Indication: STOMATITIS
     Dates: start: 20201029
  2. VITAMINS NOS [Concomitant]
     Active Substance: VITAMINS
     Indication: NUTRITIONAL SUPPLEMENTATION
     Dosage: CENTRUM, 2
     Dates: start: 20200102
  3. VITAMIN D3 [Concomitant]
     Active Substance: CHOLECALCIFEROL
     Route: 048
  4. ZINC. [Concomitant]
     Active Substance: ZINC
     Indication: NUTRITIONAL SUPPLEMENTATION
     Dates: start: 20200825
  5. MAGIC MOUTHWASH [Concomitant]
     Active Substance: DIPHENHYDRAMINE HYDROCHLORIDE\LIDOCAINE HYDROCHLORIDE\NYSTATIN
     Indication: MUCOSAL INFLAMMATION
     Dosage: 4 TIMES PER DAY
     Route: 048
     Dates: start: 20201005
  6. ERDAFITINIB. [Suspect]
     Active Substance: ERDAFITINIB
     Indication: TRANSITIONAL CELL CARCINOMA
     Dosage: MED KIT NUMBER 147169, 147242
     Route: 048
     Dates: start: 20200827, end: 20201009
  7. VITAMIN C [Concomitant]
     Active Substance: ASCORBIC ACID
     Indication: NUTRITIONAL SUPPLEMENTATION
     Route: 048
     Dates: start: 20190825
  8. CALCIUM [Concomitant]
     Active Substance: CALCIUM
     Indication: NUTRITIONAL SUPPLEMENTATION
     Route: 048
     Dates: start: 20190826
  9. VITAMIN D3 [Concomitant]
     Active Substance: CHOLECALCIFEROL
     Indication: NUTRITIONAL SUPPLEMENTATION
     Dates: start: 20200324
  10. VITAMIN C [Concomitant]
     Active Substance: ASCORBIC ACID
     Route: 048
     Dates: start: 20200930
  11. APIXABAN [Concomitant]
     Active Substance: APIXABAN
     Indication: PULMONARY EMBOLISM
     Dosage: ALSO REPORTED AS 2.5 MG
     Route: 048
     Dates: start: 20200203
  12. MAGIC MOUTHWASH [Concomitant]
     Active Substance: DIPHENHYDRAMINE HYDROCHLORIDE\LIDOCAINE HYDROCHLORIDE\NYSTATIN
     Indication: DRY MOUTH
     Dosage: 3-4 TIMES PER DAY
     Dates: start: 20200909
  13. TYLENOL [Concomitant]
     Active Substance: ACETAMINOPHEN
     Indication: MUCOSAL INFLAMMATION
     Dosage: 100 MG/5 ML, 300 MG
     Route: 048
     Dates: start: 20201001
  14. VITAMINS NOS [Concomitant]
     Active Substance: VITAMINS
     Dosage: 2 GUMMIES
     Route: 048
     Dates: start: 20200930
  15. CALCIUM [Concomitant]
     Active Substance: CALCIUM
     Dates: start: 20200930

REACTIONS (1)
  - Renal colic [Not Recovered/Not Resolved]

NARRATIVE: CASE EVENT DATE: 20201031
